FAERS Safety Report 5414411-9 (Version None)
Quarter: 2007Q3

REPORT INFORMATION
  Report Type: 
  Country: None (occurrence: None)
  Receive Date: 20070713
  Receipt Date: 20070516
  Transmission Date: 20080115
  Serious: Yes (Other)
  Sender: FDA-Public Use
  Company Number: US-JNJFOC-20060903698

PATIENT
  Age: 34 Year
  Sex: Female
  Weight: 105.2345 kg

DRUGS (1)
  1. ORTHO EVRA [Suspect]
     Indication: DRUG USE FOR UNKNOWN INDICATION
     Dosage: 1 DOSE(S), 3 IN 4 WEEK
     Dates: start: 20040301, end: 20060301

REACTIONS (2)
  - DRUG ADMINISTRATION ERROR [None]
  - THROMBOPHLEBITIS SUPERFICIAL [None]
